FAERS Safety Report 6274155-0 (Version None)
Quarter: 2009Q3

REPORT INFORMATION
  Report Type: 
  Country: None (occurrence: None)
  Receive Date: 20090720
  Receipt Date: 20090715
  Transmission Date: 20100115
  Serious: Yes (Life-Threatening, Hospitalization)
  Sender: FDA-Public Use
  Company Number: PHHY2009FR25868

PATIENT
  Sex: Female

DRUGS (14)
  1. SIMULECT [Suspect]
     Indication: RENAL TRANSPLANT
     Dosage: 20 MG ONCE
     Route: 042
     Dates: start: 20080222
  2. NEORAL [Suspect]
     Indication: RENAL TRANSPLANT
     Dosage: 150 MG, QD
     Route: 048
     Dates: start: 20080222
  3. CELLCEPT [Suspect]
     Indication: RENAL TRANSPLANT
     Dosage: 2000 MG, QD
     Route: 048
     Dates: start: 20080222
  4. SOLU-MEDROL [Suspect]
     Indication: RENAL TRANSPLANT
     Dosage: 250 MG
     Route: 042
     Dates: start: 20080222
  5. OFLOCET [Suspect]
     Dosage: 200 MG, QD
     Route: 048
     Dates: start: 20080222
  6. PROPOFOL [Concomitant]
     Dosage: UNK
     Dates: start: 20080222
  7. SUFENTANIL [Concomitant]
     Dosage: UNK
     Dates: start: 20080222
  8. TRACRIUM [Concomitant]
     Dosage: UNK
     Dates: start: 20080222
  9. OMEPRAZOLE [Concomitant]
  10. CALCIDIA [Concomitant]
  11. RENAGEL [Concomitant]
  12. VENOFER [Concomitant]
  13. RECORMON [Concomitant]
  14. ADRENALINE [Concomitant]

REACTIONS (6)
  - ANAPHYLACTIC SHOCK [None]
  - BLOOD PRESSURE SYSTOLIC DECREASED [None]
  - CIRCULATORY COLLAPSE [None]
  - PILOERECTION [None]
  - SKIN REACTION [None]
  - TACHYCARDIA [None]
